FAERS Safety Report 9421901 (Version 2)
Quarter: 2014Q1

REPORT INFORMATION
  Report Type: Spontaneous
  Country: US (occurrence: US)
  Receive Date: 20130726
  Receipt Date: 20140117
  Transmission Date: 20141002
  Serious: No
  Sender: FDA-Public Use
  Company Number: US-PFIZER INC-2013217626

PATIENT
  Age: 55 Year
  Sex: Female

DRUGS (2)
  1. AMITRIPTYLINE [Suspect]
     Dosage: UNK
  2. NORTRIPTYLINE [Suspect]
     Dosage: UNK

REACTIONS (2)
  - Drug hypersensitivity [Unknown]
  - Abnormal dreams [Unknown]
